FAERS Safety Report 9171342 (Version 2)
Quarter: 2013Q3

REPORT INFORMATION
  Report Type: Report from Study
  Country: CA (occurrence: CA)
  Receive Date: 20130319
  Receipt Date: 20130830
  Transmission Date: 20140515
  Serious: Yes (Other)
  Sender: FDA-Public Use
  Company Number: CA-ROCHE-1203308

PATIENT
  Sex: Male

DRUGS (6)
  1. ZELBORAF [Suspect]
     Indication: METASTATIC MALIGNANT MELANOMA
     Route: 048
     Dates: start: 201209, end: 20130827
  2. CYMBALTA [Concomitant]
     Route: 065
  3. ALTACE [Concomitant]
     Route: 065
  4. MIRTAZAPINE [Concomitant]
     Route: 065
  5. LOZIDE [Concomitant]
     Route: 065
  6. CRESTOR [Concomitant]
     Route: 065

REACTIONS (1)
  - Disease progression [Not Recovered/Not Resolved]
